FAERS Safety Report 4924666-2 (Version None)
Quarter: 2006Q1

REPORT INFORMATION
  Report Type: 
  Country: None (occurrence: None)
  Receive Date: 20060222
  Receipt Date: 20060206
  Transmission Date: 20060701
  Serious: Yes (Other)
  Sender: FDA-Public Use
  Company Number: AU-2006-003378

PATIENT
  Sex: Male

DRUGS (2)
  1. SOTALOL HCL [Suspect]
     Dosage: ORAL
     Route: 048
  2. ANAESTHETICS [Suspect]

REACTIONS (1)
  - DEAFNESS UNILATERAL [None]
